FAERS Safety Report 16848154 (Version 1)
Quarter: 2019Q3

REPORT INFORMATION
  Report Type: Spontaneous
  Country: US (occurrence: US)
  Receive Date: 20190802
  Receipt Date: 20190802
  Transmission Date: 20191005
  Serious: Yes (Hospitalization)
  Sender: FDA-Public Use
  Company Number: None

PATIENT
  Age: 76 Year
  Sex: Female
  Weight: 79.45 kg

DRUGS (3)
  1. HERCEPTIN [Suspect]
     Active Substance: TRASTUZUMAB
     Dates: end: 20111109
  2. CARBOPLATIN. [Suspect]
     Active Substance: CARBOPLATIN
     Dates: end: 20111109
  3. TAXOTERE [Suspect]
     Active Substance: DOCETAXEL
     Dates: end: 20110216

REACTIONS (3)
  - Fatigue [None]
  - Renal mass [None]
  - Weight decreased [None]

NARRATIVE: CASE EVENT DATE: 20171003
